FAERS Safety Report 7078863-3 (Version None)
Quarter: 2010Q4

REPORT INFORMATION
  Report Type: 
  Country: None (occurrence: None)
  Receive Date: 20101102
  Receipt Date: 20101025
  Transmission Date: 20110411
  Serious: Yes (Hospitalization)
  Sender: FDA-Public Use
  Company Number: US-NAPPMUNDI-USA-2010-0051349

PATIENT
  Sex: Male

DRUGS (2)
  1. OXYCONTIN [Suspect]
     Indication: BREAKTHROUGH PAIN
     Dosage: 20 MG, PRN
     Route: 048
  2. OXYCONTIN [Suspect]
     Dosage: 80 MG, BID
     Route: 048

REACTIONS (3)
  - ATRIAL FIBRILLATION [None]
  - INADEQUATE ANALGESIA [None]
  - PRODUCT TASTE ABNORMAL [None]
